FAERS Safety Report 14305164 (Version 1)
Quarter: 2017Q4

REPORT INFORMATION
  Report Type: Spontaneous
  Country: US (occurrence: US)
  Receive Date: 20171219
  Receipt Date: 20171219
  Transmission Date: 20180321
  Serious: Yes (Other)
  Sender: FDA-Public Use
  Company Number: US-OTSUKA-16429789

PATIENT
  Age: 18 Year
  Sex: Male

DRUGS (2)
  1. TENEX [Concomitant]
     Active Substance: GUANFACINE HYDROCHLORIDE
     Indication: PRODUCT USED FOR UNKNOWN INDICATION
     Dosage: 10 MG, UNK
     Route: 065
  2. ABILIFY [Suspect]
     Active Substance: ARIPIPRAZOLE
     Indication: AUTISM SPECTRUM DISORDER
     Dosage: 10 MG, UNK
     Route: 065

REACTIONS (2)
  - Swelling face [Unknown]
  - Seizure [Unknown]

NARRATIVE: CASE EVENT DATE: 2012
